FAERS Safety Report 21410082 (Version 1)
Quarter: 2022Q4

REPORT INFORMATION
  Report Type: Spontaneous
  Country: US (occurrence: US)
  Receive Date: 20221005
  Receipt Date: 20221005
  Transmission Date: 20230113
  Serious: No
  Sender: FDA-Public Use
  Company Number: US-ORGANON-O2209USA001922

PATIENT
  Age: 29 Year
  Sex: Female
  Weight: 82.993 kg

DRUGS (2)
  1. NUVARING [Suspect]
     Active Substance: ETHINYL ESTRADIOL\ETONOGESTREL
     Indication: Contraception
     Dosage: 1 RING EVERY WEEK FOR 3 WEEKS AND THEN 1 WEEK BREAK
     Route: 067
     Dates: start: 202208
  2. NUVARING [Suspect]
     Active Substance: ETHINYL ESTRADIOL\ETONOGESTREL
     Indication: Polycystic ovaries

REACTIONS (4)
  - Abdominal pain [Not Recovered/Not Resolved]
  - Product prescribing issue [Unknown]
  - Product storage error [Unknown]
  - Product use in unapproved indication [Unknown]

NARRATIVE: CASE EVENT DATE: 20220801
